FAERS Safety Report 4755629-8 (Version None)
Quarter: 2005Q3

REPORT INFORMATION
  Report Type: 
  Country: None (occurrence: None)
  Receive Date: 20050830
  Receipt Date: 20050608
  Transmission Date: 20060218
  Serious: No
  Sender: FDA-Public Use
  Company Number: US-BRISTOL-MYERS SQUIBB COMPANY-12997284

PATIENT

DRUGS (1)
  1. ABILIFY [Suspect]

REACTIONS (1)
  - TREMOR [None]
